FAERS Safety Report 14600069 (Version 1)
Quarter: 2018Q1

REPORT INFORMATION
  Report Type: Spontaneous
  Country: DE (occurrence: DE)
  Receive Date: 20180305
  Receipt Date: 20180305
  Transmission Date: 20180509
  Serious: Yes (Disabling)
  Sender: FDA-Public Use
  Company Number: DE-TEVA-517661GER

PATIENT
  Sex: Male
  Weight: 71 kg

DRUGS (2)
  1. LEVOFLOXACIN-RATIOPHARM 500 MG FILMTABLETTEN [Suspect]
     Active Substance: LEVOFLOXACIN
     Indication: PROSTATITIS
     Dosage: 5 WEEKS
     Route: 048
     Dates: start: 201408, end: 201409
  2. LEVOFLOXACIN-RATIOPHARM 500 MG FILMTABLETTEN [Suspect]
     Active Substance: LEVOFLOXACIN
     Route: 048
     Dates: start: 201409, end: 20141002

REACTIONS (9)
  - Dizziness [Unknown]
  - Pyrexia [Unknown]
  - Limb discomfort [Unknown]
  - Tendon discomfort [Recovering/Resolving]
  - Arthralgia [Not Recovered/Not Resolved]
  - Balance disorder [Unknown]
  - Deafness [Unknown]
  - Rheumatic disorder [Not Recovered/Not Resolved]
  - Joint noise [Not Recovered/Not Resolved]
